FAERS Safety Report 12585558 (Version 2)
Quarter: 2016Q4

REPORT INFORMATION
  Report Type: Spontaneous
  Country: IT (occurrence: IT)
  Receive Date: 20160725
  Receipt Date: 20161122
  Transmission Date: 20170207
  Serious: Yes (Other)
  Sender: FDA-Public Use
  Company Number: IT-009507513-1607ITA008720

PATIENT
  Age: 72 Year
  Sex: Female

DRUGS (5)
  1. AMLODIPINE [Concomitant]
     Active Substance: AMLODIPINE BESYLATE
     Dosage: UNK
  2. TARGET (ATENOLOL (+) CHLORTHALIDONE) [Concomitant]
     Dosage: UNK
  3. LAMIVUDINE. [Concomitant]
     Active Substance: LAMIVUDINE
     Dosage: UNK
  4. TEVA LANSOPRAZOLE [Concomitant]
     Dosage: UNK
  5. JANUMET [Suspect]
     Active Substance: METFORMIN HYDROCHLORIDE\SITAGLIPTIN PHOSPHATE
     Indication: DIABETES MELLITUS
     Dosage: 2 DF, QD, 2 DOSE UNITS DAILY
     Route: 048
     Dates: start: 20121001, end: 20160616

REACTIONS (2)
  - Microcytosis [Unknown]
  - Tonsillar neoplasm [Unknown]

NARRATIVE: CASE EVENT DATE: 20160201
